FAERS Safety Report 9603045 (Version 5)
Quarter: 2013Q4

REPORT INFORMATION
  Report Type: Spontaneous
  Country: DE (occurrence: DE)
  Receive Date: 20131007
  Receipt Date: 20131206
  Transmission Date: 20140711
  Serious: Yes (Hospitalization)
  Sender: FDA-Public Use
  Company Number: DE-SA-2013SA096793

PATIENT
  Age: 76 Year
  Sex: Male
  Weight: 135 kg

DRUGS (13)
  1. ELIGARD [Suspect]
     Indication: PROSTATE CANCER
     Dosage: FREQUENCY: OTHER 3 MONTH DEPOT
     Route: 058
     Dates: start: 20130318
  2. EUTHYROX [Concomitant]
     Dosage: DOSE: 100
     Dates: start: 201111
  3. VALSARTAN [Concomitant]
     Dosage: DOSE: 80
     Dates: start: 201111
  4. NEBIVOLOL [Concomitant]
     Dosage: DOSE: 5
     Dates: start: 201111
  5. REKAWAN [Concomitant]
     Dosage: DOSE: 600
     Dates: start: 201111
  6. PANTOPRAZOLE [Concomitant]
     Dosage: DOSE: 40
     Dates: start: 201111
  7. ASS [Concomitant]
     Dosage: DOSE: 100
     Dates: start: 201111
  8. TORASEMIDE [Concomitant]
     Dosage: DOSE: 10
     Dates: start: 201111
  9. CALCIUM [Concomitant]
     Dosage: DOSE: 500
     Dates: start: 201111
  10. FLUVASTATIN [Concomitant]
     Dosage: DOSE: 40
     Dates: start: 201111
  11. HEPARIN CALCIUM [Concomitant]
  12. HYDROCHLOROTHIAZIDE [Concomitant]
  13. XARELTO [Concomitant]

REACTIONS (3)
  - Diverticulum [Recovered/Resolved]
  - Gastrointestinal polyp haemorrhage [Recovered/Resolved]
  - Constipation [Unknown]
